FAERS Safety Report 5781218-2 (Version None)
Quarter: 2008Q2

REPORT INFORMATION
  Report Type: 
  Country: None (occurrence: None)
  Receive Date: 20080610
  Receipt Date: 20080528
  Transmission Date: 20081010
  Serious: Yes (Other)
  Sender: FDA-Public Use
  Company Number: THYM-1000706

PATIENT
  Sex: Female

DRUGS (10)
  1. THYMOGLOBULIN [Suspect]
     Indication: KIDNEY TRANSPLANT REJECTION
     Dosage: 1.5 MG/KG, QD; INTRAVENOUS
     Route: 042
  2. THYMOGLOBULIN [Suspect]
     Indication: RENAL TRANSPLANT
     Dosage: 1.5 MG/KG, QD; INTRAVENOUS
     Route: 042
  3. PREDNISONE TAB [Concomitant]
  4. CELLCEPT [Concomitant]
  5. PROGRAF [Concomitant]
  6. METOPROLOL TARTRATE [Concomitant]
  7. PRILOSEC [Concomitant]
  8. METHYLPREDNISOLONE [Concomitant]
  9. TYLENOL (PARACETAMOL, PSEUDOEPHEDRINE HYDROCHLORIDE) [Concomitant]
  10. BENADRYL [Concomitant]

REACTIONS (4)
  - FLUID RETENTION [None]
  - HEADACHE [None]
  - HYPERTENSION [None]
  - SERUM SICKNESS [None]
